FAERS Safety Report 22080110 (Version 1)
Quarter: 2023Q1

REPORT INFORMATION
  Report Type: Report from Study
  Country: US (occurrence: US)
  Receive Date: 20230309
  Receipt Date: 20230309
  Transmission Date: 20230418
  Serious: Yes (Other)
  Sender: FDA-Public Use
  Company Number: US-ABBVIE-4333608

PATIENT
  Sex: Female

DRUGS (1)
  1. HUMIRA [Suspect]
     Active Substance: ADALIMUMAB
     Indication: Rheumatoid arthritis
     Route: 058
     Dates: start: 20221010

REACTIONS (4)
  - Brain neoplasm [Not Recovered/Not Resolved]
  - Hypoacusis [Unknown]
  - Vertigo [Unknown]
  - Tinnitus [Unknown]

NARRATIVE: CASE EVENT DATE: 20230101
